FAERS Safety Report 5986852-2 (Version None)
Quarter: 2008Q4

REPORT INFORMATION
  Report Type: 
  Country: None (occurrence: None)
  Receive Date: 20081209
  Receipt Date: 20081115
  Transmission Date: 20090506
  Serious: No
  Sender: FDA-Public Use
  Company Number: US-BAYER-200814444BCC

PATIENT
  Age: 3 Year
  Sex: Female
  Weight: 18 kg

DRUGS (2)
  1. ALEVE [Suspect]
     Indication: ACCIDENTAL EXPOSURE
     Dosage: TOTAL DAILY DOSE: 220 MG  UNIT DOSE: 220 MG
     Dates: start: 20081115, end: 20081115
  2. MIRALAX [Concomitant]

REACTIONS (1)
  - OROPHARYNGEAL PAIN [None]
